FAERS Safety Report 19671000 (Version 3)
Quarter: 2021Q3

REPORT INFORMATION
  Report Type: Spontaneous
  Country: US (occurrence: US)
  Receive Date: 20210806
  Receipt Date: 20210928
  Transmission Date: 20211014
  Serious: Yes (Death, Hospitalization, Other)
  Sender: FDA-Public Use
  Company Number: US-ALLERGAN-2127456US

PATIENT
  Sex: Male
  Weight: 108.84 kg

DRUGS (2)
  1. POLYMEDICATION [Concomitant]
  2. LINZESS [Suspect]
     Active Substance: LINACLOTIDE
     Indication: IRRITABLE BOWEL SYNDROME
     Dosage: 290 ?G, QAM
     Route: 048
     Dates: start: 202012

REACTIONS (2)
  - Pericardial effusion [Recovered/Resolved]
  - Death [Fatal]

NARRATIVE: CASE EVENT DATE: 2021
